FAERS Safety Report 21142841 (Version 1)
Quarter: 2022Q3

REPORT INFORMATION
  Report Type: Spontaneous
  Country: US (occurrence: US)
  Receive Date: 20220728
  Receipt Date: 20220728
  Transmission Date: 20221026
  Serious: Yes (Hospitalization)
  Sender: FDA-Public Use
  Company Number: US-TEVA-2022-US-2057819

PATIENT
  Age: 59 Year
  Sex: Male

DRUGS (5)
  1. OXALIPLATIN [Suspect]
     Active Substance: OXALIPLATIN
     Indication: Neoplasm malignant
     Dosage: TWO DRUG DILUTIONS OF OXALIPLATIN WERE PREPARED: BAG 1 CONTAINING 10% OF THE TOTAL DOSE IN 100ML ...
     Route: 050
  2. OXALIPLATIN [Suspect]
     Active Substance: OXALIPLATIN
     Indication: Immune tolerance induction
  3. DEXAMETHASONE [Concomitant]
     Active Substance: DEXAMETHASONE
     Indication: Premedication
     Dosage: 20 MG
     Route: 042
  4. FAMOTIDINE [Concomitant]
     Active Substance: FAMOTIDINE
     Indication: Premedication
     Dosage: 20 MG
     Route: 042
  5. DIPHENHYDRAMINE [Concomitant]
     Active Substance: DIPHENHYDRAMINE
     Indication: Premedication
     Dosage: 50 MG
     Route: 042

REACTIONS (6)
  - Drug hypersensitivity [Unknown]
  - Haematuria [Unknown]
  - Chills [Unknown]
  - Dyspnoea [Unknown]
  - Haemolysis [Unknown]
  - Immune thrombocytopenia [Unknown]
